FAERS Safety Report 4801403-3 (Version None)
Quarter: 2005Q4

REPORT INFORMATION
  Report Type: 
  Country: None (occurrence: None)
  Receive Date: 20051018
  Receipt Date: 20051006
  Transmission Date: 20060501
  Serious: Yes (Other)
  Sender: FDA-Public Use
  Company Number: CA-NOVOPROD-247571

PATIENT
  Age: 48 Year
  Sex: Male

DRUGS (3)
  1. NOVORAPID PENFILL [Suspect]
     Indication: ILL-DEFINED DISORDER
     Dosage: 68 IU, QD
     Dates: start: 20050719
  2. NOVOLIN GE NPH [Concomitant]
     Indication: ILL-DEFINED DISORDER
  3. NOVOLIN GE 30/70 [Concomitant]
     Indication: ILL-DEFINED DISORDER

REACTIONS (4)
  - COUGH [None]
  - DRUG HYPERSENSITIVITY [None]
  - DYSPNOEA [None]
  - HYPERSENSITIVITY [None]
